FAERS Safety Report 4422618-2 (Version None)
Quarter: 2004Q3

REPORT INFORMATION
  Report Type: 
  Country: None (occurrence: None)
  Receive Date: 20040713
  Receipt Date: 20030507
  Transmission Date: 20050211
  Serious: No
  Sender: FDA-Public Use
  Company Number: PHEH2003US03802

PATIENT
  Age: 2 Year
  Sex: Male

DRUGS (2)
  1. ELIDEL [Suspect]
     Indication: ECZEMA
     Dosage: QD, TOPICAL
     Route: 061
     Dates: start: 20030101, end: 20030201
  2. COUGH AND COLD PREPARATIONS [Concomitant]

REACTIONS (1)
  - APPLICATION SITE DISCOLOURATION [None]
